FAERS Safety Report 23343726 (Version 2)
Quarter: 2024Q1

REPORT INFORMATION
  Report Type: Spontaneous
  Country: US (occurrence: US)
  Receive Date: 20231227
  Receipt Date: 20240117
  Transmission Date: 20240410
  Serious: Yes (Other)
  Sender: FDA-Public Use
  Company Number: US-Fresenius Medical Care Renal Therapies Group-FMC-2312-001327

PATIENT
  Age: 57 Year
  Sex: Female

DRUGS (3)
  1. DELFLEX WITH DEXTROSE 1.5% LOW MAGNESIUM LOW CALCIUM [Suspect]
     Active Substance: CALCIUM CHLORIDE\DEXTROSE\MAGNESIUM CHLORIDE\SODIUM CHLORIDE\SODIUM LACTATE
     Indication: End stage renal disease
     Dosage: 7 DAYS-A-WEEK, 1.5%, 2.5%, 4.25% DIALYSATE SOLUTIONS, EXCHANGES = 4, FILL VOLUME = 2500 ML, DWELL TI
     Route: 033
  2. DELFLEX WITH DEXTROSE 2.5% LOW MAGNESIUM LOW CALCIUM [Suspect]
     Active Substance: CALCIUM CHLORIDE\DEXTROSE\MAGNESIUM CHLORIDE\SODIUM CHLORIDE\SODIUM LACTATE
     Indication: End stage renal disease
     Dosage: 7 DAYS-A-WEEK, 1.5%, 2.5%, 4.25% DIALYSATE SOLUTIONS, EXCHANGES = 4, FILL VOLUME = 2500 ML, DWELL TI
     Route: 033
  3. DELFLEX WITH DEXTROSE 4.25% LOW MAGNESIUM LOW CALCIUM [Suspect]
     Active Substance: CALCIUM CHLORIDE\DEXTROSE\MAGNESIUM CHLORIDE\SODIUM CHLORIDE\SODIUM LACTATE
     Indication: End stage renal disease
     Dosage: 7 DAYS-A-WEEK, 1.5%, 2.5%, 4.25% DIALYSATE SOLUTIONS, EXCHANGES = 4, FILL VOLUME = 2500 ML, DWELL TI
     Route: 033

REACTIONS (2)
  - Peritonitis [Recovering/Resolving]
  - Fungal peritonitis [Unknown]
